FAERS Safety Report 8843052 (Version 1)
Quarter: 2012Q4

REPORT INFORMATION
  Report Type: 
  Country: IT (occurrence: IT)
  Receive Date: 20121016
  Receipt Date: 20121016
  Transmission Date: 20130627
  Serious: Yes (Hospitalization)
  Sender: FDA-Public Use
  Company Number: IT-GLAXOSMITHKLINE-B0837733A

PATIENT
  Age: 39 Year
  Sex: Male

DRUGS (12)
  1. ALKERAN [Suspect]
     Indication: AMYLOIDOSIS
     Dosage: 12MG per day
     Route: 048
     Dates: start: 20111115, end: 20111118
  2. VELCADE [Suspect]
     Indication: AMYLOIDOSIS
     Dosage: 2MG per day
     Route: 042
     Dates: start: 20111115, end: 20111118
  3. SOLDESAM [Suspect]
     Indication: AMYLOIDOSIS
     Dosage: 20MG per day
     Route: 042
     Dates: start: 20111115, end: 20111118
  4. ACICLOVIR [Concomitant]
     Dosage: 400MG per day
     Route: 048
  5. CIPROFLOXACIN [Concomitant]
     Dosage: 250MG per day
     Route: 048
     Dates: start: 20111115, end: 20111125
  6. FUROSEMIDE [Concomitant]
     Dosage: 50MG per day
     Route: 048
  7. ALLOPURINOL [Concomitant]
     Dosage: 300MG per day
     Route: 048
  8. OMEPRAZOLE [Concomitant]
     Dosage: 20MG per day
     Route: 048
  9. CARDIOASPIRIN [Concomitant]
     Dosage: 100MG per day
     Route: 048
  10. GOLTOR [Concomitant]
     Dosage: 10MG Per day
  11. LENTOKALIUM [Concomitant]
     Dosage: 4CAP per day
  12. MODURETIC [Concomitant]
     Dosage: 1TAB Per day

REACTIONS (4)
  - Cardiac failure [Recovered/Resolved]
  - Asthenia [Recovered/Resolved]
  - Dyspnoea [Recovered/Resolved]
  - Oedema peripheral [Recovered/Resolved]
